FAERS Safety Report 6453835-8 (Version None)
Quarter: 2009Q4

REPORT INFORMATION
  Report Type: 
  Country: None (occurrence: None)
  Receive Date: 20091123
  Receipt Date: 20091123
  Transmission Date: 20100525
  Serious: Yes (Other)
  Sender: FDA-Public Use
  Company Number: None

PATIENT
  Age: 51 Year
  Sex: Female
  Weight: 62.5964 kg

DRUGS (1)
  1. PROPOFOL [Suspect]
     Indication: COLONOSCOPY
     Dosage: IV
     Route: 042
     Dates: start: 20090831, end: 20090831

REACTIONS (4)
  - BALANCE DISORDER [None]
  - DELAYED RECOVERY FROM ANAESTHESIA [None]
  - ISCHAEMIA [None]
  - MEMORY IMPAIRMENT [None]
